FAERS Safety Report 24996108 (Version 1)
Quarter: 2025Q1

REPORT INFORMATION
  Report Type: Spontaneous
  Country: US (occurrence: US)
  Receive Date: 20250221
  Receipt Date: 20250221
  Transmission Date: 20250409
  Serious: No
  Sender: CATALYST PHARMA
  Company Number: US-CATALYST PHARMACEUTICALS-US-CATA-25-00145

PATIENT
  Age: 10 Year
  Sex: Male
  Weight: 44.3 kg

DRUGS (2)
  1. AGAMREE [Suspect]
     Active Substance: VAMOROLONE
     Indication: Product used for unknown indication
     Dosage: 6 ML DAILY (6 MG/KG/D; 248 MG)
     Route: 048
     Dates: start: 20240510
  2. VYONDYS 53 [Concomitant]
     Active Substance: GOLODIRSEN
     Indication: Product used for unknown indication
     Dosage: WEEKLY
     Route: 042
     Dates: start: 202211

REACTIONS (1)
  - Troponin increased [Not Recovered/Not Resolved]

NARRATIVE: CASE EVENT DATE: 20241017
